FAERS Safety Report 4828934-4 (Version None)
Quarter: 2005Q4

REPORT INFORMATION
  Report Type: 
  Country: None (occurrence: None)
  Receive Date: 20051014
  Receipt Date: 20050712
  Transmission Date: 20060501
  Serious: No
  Sender: FDA-Public Use
  Company Number: 2005SP001862

PATIENT
  Age: 37 Year
  Sex: Female
  Weight: 67.586 kg

DRUGS (4)
  1. LUNESTA [Suspect]
     Dosage: 1 MG;HS;ORAL  1 MG;X1;ORAL   1 MG;X1;ORAL   2 MG;HS;ORAL
     Route: 048
     Dates: start: 20050711, end: 20050711
  2. LUNESTA [Suspect]
     Dosage: 1 MG;HS;ORAL  1 MG;X1;ORAL   1 MG;X1;ORAL   2 MG;HS;ORAL
     Route: 048
     Dates: start: 20050711, end: 20050711
  3. LUNESTA [Suspect]
     Dosage: 1 MG;HS;ORAL  1 MG;X1;ORAL   1 MG;X1;ORAL   2 MG;HS;ORAL
     Route: 048
     Dates: start: 20050711, end: 20050711
  4. LUNESTA [Suspect]
     Dosage: 1 MG;HS;ORAL  1 MG;X1;ORAL   1 MG;X1;ORAL   2 MG;HS;ORAL
     Route: 048
     Dates: start: 20050701

REACTIONS (2)
  - DRUG INEFFECTIVE [None]
  - DYSGEUSIA [None]
